FAERS Safety Report 11857703 (Version 1)
Quarter: 2015Q4

REPORT INFORMATION
  Report Type: Spontaneous
  Country: US (occurrence: None)
  Receive Date: 20151221
  Receipt Date: 20151221
  Transmission Date: 20160305
  Serious: Yes (Other)
  Sender: FDA-Public Use
  Company Number: None

PATIENT
  Age: 49 Year
  Sex: Male
  Weight: 73.94 kg

DRUGS (1)
  1. TRIUMEQ [Suspect]
     Active Substance: ABACAVIR SULFATE\DOLUTEGRAVIR SODIUM\LAMIVUDINE
     Indication: HIV INFECTION
     Route: 048
     Dates: start: 20151008, end: 20151016

REACTIONS (8)
  - Impaired work ability [None]
  - Anxiety [None]
  - Unresponsive to stimuli [None]
  - Panic attack [None]
  - Insomnia [None]
  - Palpitations [None]
  - Disturbance in attention [None]
  - Migraine [None]

NARRATIVE: CASE EVENT DATE: 20151008
